FAERS Safety Report 7233120-7 (Version None)
Quarter: 2011Q1

REPORT INFORMATION
  Report Type: 
  Country: None (occurrence: None)
  Receive Date: 20110107
  Receipt Date: 20101222
  Transmission Date: 20110831
  Serious: Yes (Disabling)
  Sender: FDA-Public Use
  Company Number: 0215542

PATIENT
  Age: 28 Year
  Sex: Female

DRUGS (1)
  1. TACHOSIL [Suspect]
     Indication: HAEMOSTASIS
     Dosage: 1 DOSAGE FORMS, ONCE TOPICAL
     Route: 061
     Dates: start: 20101109, end: 20101109

REACTIONS (1)
  - VOCAL CORD PARALYSIS [None]
